FAERS Safety Report 23012152 (Version 2)
Quarter: 2023Q4

REPORT INFORMATION
  Report Type: Other
  Country: US (occurrence: None)
  Receive Date: 20230930
  Receipt Date: 20231124
  Transmission Date: 20240110
  Serious: Yes (Other)
  Sender: FDA-Public Use
  Company Number: US-ROCHE-3429915

PATIENT
  Sex: Female

DRUGS (1)
  1. OCREVUS [Suspect]
     Active Substance: OCRELIZUMAB
     Indication: Multiple sclerosis
     Dosage: DATE OF TREATMENT FOR 1ST HALF INFUSION : 24/FEB/2023 DATE OF TREATMENT FOR 2ND HALF INFUSION :17/MA
     Route: 042

REACTIONS (1)
  - Urinary tract infection [Recovered/Resolved]
